FAERS Safety Report 5871642-1 (Version None)
Quarter: 2008Q3

REPORT INFORMATION
  Report Type: 
  Country: None (occurrence: None)
  Receive Date: 20080904
  Receipt Date: 20080904
  Transmission Date: 20090109
  Serious: No
  Sender: FDA-Public Use
  Company Number: None

PATIENT
  Age: 60 Year
  Sex: Female
  Weight: 52.1637 kg

DRUGS (1)
  1. FLUTICASONE PROPIONATE [Suspect]
     Indication: RHINITIS ALLERGIC

REACTIONS (2)
  - COUGH [None]
  - POSTNASAL DRIP [None]
